FAERS Safety Report 10190916 (Version 1)
Quarter: 2014Q2

REPORT INFORMATION
  Report Type: Spontaneous
  Country: GB (occurrence: GB)
  Receive Date: 20140523
  Receipt Date: 20140523
  Transmission Date: 20141212
  Serious: Yes (Death, Other)
  Sender: FDA-Public Use
  Company Number: GB-RANBAXY-2014RR-81537

PATIENT
  Age: 64 Year
  Sex: Male

DRUGS (7)
  1. FLUCLOXACILLIN [Suspect]
     Indication: CELLULITIS
     Dosage: UNK
     Route: 042
  2. BAXTER SODIUM CHLORIDE [Suspect]
     Indication: MEDICATION DILUTION
     Dosage: 250 ML
     Route: 065
     Dates: start: 20140319
  3. BAXTER WATER FOR INJECTIONS 1000ML INJECTION BP BAG AHB0304 [Suspect]
     Indication: MEDICATION DILUTION
     Dosage: 33.6 ML SOLVENT FOR PARENTERAL USE
     Route: 065
     Dates: start: 20140319
  4. ACICLOVIR [Suspect]
     Indication: ANTIVIRAL PROPHYLAXIS
     Dosage: 400 MG, BID
     Route: 065
  5. BENZYLPENICILLIN [Suspect]
     Indication: CELLULITIS
     Dosage: UNK
     Route: 042
  6. BRENTUXIMAB VEDOTIN [Suspect]
     Indication: ANAPLASTIC LARGE-CELL LYMPHOMA
     Dosage: 160 MG, DAILY
     Route: 042
     Dates: start: 20140319, end: 20140319
  7. CO-TRIMOXAZOLE [Suspect]
     Indication: ANTIVIRAL PROPHYLAXIS
     Dosage: 480 MG, 3/WEEK
     Route: 048

REACTIONS (4)
  - Death [Fatal]
  - Cardiovascular disorder [Recovered/Resolved]
  - Infection [Unknown]
  - Cellulitis [Unknown]
